FAERS Safety Report 12880536 (Version 1)
Quarter: 2016Q4

REPORT INFORMATION
  Report Type: Spontaneous
  Country: US (occurrence: US)
  Receive Date: 20161024
  Receipt Date: 20161024
  Transmission Date: 20170207
  Serious: Yes (Life-Threatening, Disabling, Other)
  Sender: FDA-Public Use
  Company Number: None

PATIENT
  Age: 37 Year
  Sex: Male
  Weight: 92.25 kg

DRUGS (1)
  1. EFFEXOR [Suspect]
     Active Substance: VENLAFAXINE HYDROCHLORIDE
     Indication: DEPRESSION
     Dosage: QUANTITY:1 TABLET(S); ORAL?
     Route: 048
     Dates: start: 20161018, end: 20161018

REACTIONS (1)
  - Serotonin syndrome [None]

NARRATIVE: CASE EVENT DATE: 20161018
